FAERS Safety Report 17061876 (Version 2)
Quarter: 2019Q4

REPORT INFORMATION
  Report Type: Spontaneous
  Country: ES (occurrence: ES)
  Receive Date: 20191121
  Receipt Date: 20191126
  Transmission Date: 20200122
  Serious: Yes (Hospitalization)
  Sender: FDA-Public Use
  Company Number: NVSC2019ES042338

PATIENT
  Age: 35 Year
  Sex: Female

DRUGS (3)
  1. NILOTINIB [Suspect]
     Active Substance: NILOTINIB
     Indication: CHRONIC MYELOID LEUKAEMIA
     Dosage: 300 MG, BID
     Route: 065
     Dates: start: 201904
  2. IMATINIB. [Suspect]
     Active Substance: IMATINIB MESYLATE
     Indication: CHRONIC MYELOID LEUKAEMIA
     Dosage: 400 MG, QD
     Route: 065
  3. PREDNISONE. [Concomitant]
     Active Substance: PREDNISONE
     Indication: PRODUCT USED FOR UNKNOWN INDICATION
     Dosage: UNK
     Route: 065

REACTIONS (6)
  - Respiratory disorder [Recovered/Resolved]
  - Drug intolerance [Unknown]
  - Pharyngeal oedema [Recovered/Resolved]
  - Acute respiratory failure [Unknown]
  - Neck mass [Recovered/Resolved]
  - Laryngeal oedema [Unknown]

NARRATIVE: CASE EVENT DATE: 201910
